FAERS Safety Report 10971360 (Version 1)
Quarter: 2015Q1

REPORT INFORMATION
  Report Type: Spontaneous
  Country: US (occurrence: None)
  Receive Date: 20150330
  Receipt Date: 20150330
  Transmission Date: 20150721
  Serious: Yes (Other)
  Sender: FDA-Public Use
  Company Number: None

PATIENT
  Sex: Female

DRUGS (1)
  1. SOMBRA WARM THERAPY [Suspect]
     Active Substance: CAMPHOR (SYNTHETIC)\MENTHOL
     Indication: ANALGESIC THERAPY
     Dates: start: 20150311, end: 20150312

REACTIONS (4)
  - Chemical injury [None]
  - Impaired work ability [None]
  - Application site infection [None]
  - Application site burn [None]

NARRATIVE: CASE EVENT DATE: 20150313
